FAERS Safety Report 4789358-1 (Version None)
Quarter: 2005Q3

REPORT INFORMATION
  Report Type: 
  Country: None (occurrence: None)
  Receive Date: 20050929
  Receipt Date: 20050601
  Transmission Date: 20060218
  Serious: No
  Sender: FDA-Public Use
  Company Number: 05P-163-0302052-00

PATIENT
  Age: 46 Year
  Sex: Female
  Weight: 81.6475 kg

DRUGS (5)
  1. HUMIRA [Suspect]
     Indication: RHEUMATOID ARTHRITIS
     Dosage: 40 MG, 1 IN 1 WK, SUBCUTANEOUS; 40 MG, 1 IN 2  WK, SUBCUTANEOUS
     Route: 058
     Dates: start: 20050422, end: 20050506
  2. HUMIRA [Suspect]
     Indication: RHEUMATOID ARTHRITIS
     Dosage: 40 MG, 1 IN 1 WK, SUBCUTANEOUS; 40 MG, 1 IN 2  WK, SUBCUTANEOUS
     Route: 058
     Dates: start: 20050506
  3. VICODIN [Concomitant]
  4. ALPRAZOLAM [Concomitant]
  5. AMITRIPTYLINE HCL [Concomitant]

REACTIONS (1)
  - JAW CYST [None]
